FAERS Safety Report 10057328 (Version 2)
Quarter: 2014Q2

REPORT INFORMATION
  Report Type: Report from Study
  Country: DE (occurrence: DE)
  Receive Date: 20140403
  Receipt Date: 20140509
  Transmission Date: 20141212
  Serious: Yes (Hospitalization)
  Sender: FDA-Public Use
  Company Number: DE-ABBVIE-14P-062-1216742-00

PATIENT
  Age: 43 Year
  Sex: Male

DRUGS (2)
  1. HUMIRA [Suspect]
     Indication: CROHN^S DISEASE
     Dosage: SYRINGES AND PEN
     Route: 058
     Dates: start: 20140307, end: 20140307
  2. HUMIRA [Suspect]
     Route: 058
     Dates: start: 20140421

REACTIONS (1)
  - Adverse event [Recovering/Resolving]
